FAERS Safety Report 10177141 (Version 1)
Quarter: 2014Q2

REPORT INFORMATION
  Report Type: Spontaneous
  Country: CH (occurrence: None)
  Receive Date: 20140514
  Receipt Date: 20140514
  Transmission Date: 20141212
  Serious: Yes (Death)
  Sender: FDA-Public Use
  Company Number: FK201401716

PATIENT
  Age: 7 Year
  Sex: Male

DRUGS (3)
  1. PROPOFOL (MANUFACTURER UNKNOWN) (PROPOFOL) (PROPOFOL) [Suspect]
     Indication: SEDATION
     Dosage: 12MG/KG/H, INTRAVENOUS (NOT OTHERWISE SPECIFIED)
     Route: 042
  2. MIDAZOLAM (MIDAZOLAM) [Concomitant]
  3. NALBUPHINE (NALBUPHINE) (NALBUPHINE) [Concomitant]

REACTIONS (22)
  - Bradyarrhythmia [None]
  - No therapeutic response [None]
  - Brain oedema [None]
  - Brain herniation [None]
  - Intracranial pressure increased [None]
  - Rhabdomyolysis [None]
  - Metabolic acidosis [None]
  - Acidosis hyperchloraemic [None]
  - Muscular weakness [None]
  - Coma scale abnormal [None]
  - Pyrexia [None]
  - Respiratory distress [None]
  - Blood creatine phosphokinase increased [None]
  - Aspartate aminotransferase increased [None]
  - Alanine aminotransferase increased [None]
  - Convulsion [None]
  - Cardiovascular disorder [None]
  - Supraventricular tachycardia [None]
  - Renal failure acute [None]
  - Conduction disorder [None]
  - Cardiac arrest [None]
  - Mydriasis [None]
